FAERS Safety Report 12187547 (Version 3)
Quarter: 2016Q2

REPORT INFORMATION
  Report Type: Spontaneous
  Country: GB (occurrence: GB)
  Receive Date: 20160317
  Receipt Date: 20160407
  Transmission Date: 20160815
  Serious: Yes (Other)
  Sender: FDA-Public Use
  Company Number: GB-NOVOPROD-482532

PATIENT
  Age: 58 Year
  Sex: Female

DRUGS (107)
  1. CLIMESSE [Suspect]
     Active Substance: ESTRADIOL VALERATE\NORETHINDRONE
     Dosage: UNK
     Route: 048
     Dates: start: 20050706
  2. CLIMESSE [Suspect]
     Active Substance: ESTRADIOL VALERATE\NORETHINDRONE
     Dosage: UNK
     Route: 048
     Dates: start: 20131210
  3. LATANOPROST. [Suspect]
     Active Substance: LATANOPROST
     Indication: PRODUCT USED FOR UNKNOWN INDICATION
     Dosage: 01 DROP AT NIGHT IN BOTH EYES
     Route: 065
     Dates: start: 20050414, end: 20080108
  4. LATANOPROST. [Suspect]
     Active Substance: LATANOPROST
     Dosage: 01 DROP AT NIGHT IN BOTH EYES
     Route: 065
     Dates: start: 20060901, end: 20080108
  5. LATANOPROST. [Suspect]
     Active Substance: LATANOPROST
     Dosage: 01 DROP AT NIGHT IN BOTH EYES
     Route: 065
     Dates: start: 20071001, end: 20080108
  6. LATANOPROST. [Suspect]
     Active Substance: LATANOPROST
     Dosage: 01 DROP AT NIGHT IN BOTH EYES
     Route: 065
     Dates: start: 20060725, end: 20080108
  7. XALACOM [Suspect]
     Active Substance: LATANOPROST\TIMOLOL MALEATE
     Dosage: TO RIGHT EYE AT NIGHT (2.5 ML)
     Route: 065
     Dates: start: 20110426
  8. XALACOM [Suspect]
     Active Substance: LATANOPROST\TIMOLOL MALEATE
     Dosage: TO RIGHT EYE AT NIGHT (2.5 ML)
     Route: 065
     Dates: start: 20120423
  9. XALACOM [Suspect]
     Active Substance: LATANOPROST\TIMOLOL MALEATE
     Dosage: TO RIGHT EYE AT NIGHT (2.5 ML)
     Route: 065
     Dates: start: 20140522
  10. XALACOM [Suspect]
     Active Substance: LATANOPROST\TIMOLOL MALEATE
     Dosage: TO RIGHT EYE AT NIGHT (2.5 ML)
     Route: 065
     Dates: start: 20121210
  11. XALACOM [Suspect]
     Active Substance: LATANOPROST\TIMOLOL MALEATE
     Dosage: TO RIGHT EYE AT NIGHT (2.5 ML)
     Route: 065
     Dates: start: 20110512
  12. XALACOM [Suspect]
     Active Substance: LATANOPROST\TIMOLOL MALEATE
     Dosage: TO RIGHT EYE AT NIGHT (2.5 ML)
     Route: 065
     Dates: start: 20120823
  13. XALACOM [Suspect]
     Active Substance: LATANOPROST\TIMOLOL MALEATE
     Dosage: TO RIGHT EYE AT NIGHT (2.5 ML)
     Route: 065
     Dates: start: 20110228
  14. XALACOM [Suspect]
     Active Substance: LATANOPROST\TIMOLOL MALEATE
     Dosage: TO RIGHT EYE AT NIGHT (2.5 ML)
     Route: 065
     Dates: start: 20150819
  15. XALACOM [Suspect]
     Active Substance: LATANOPROST\TIMOLOL MALEATE
     Dosage: TO RIGHT EYE AT NIGHT (2.5 ML)
     Route: 065
     Dates: start: 20141216
  16. AMOXYCILLIN                        /00249601/ [Concomitant]
     Active Substance: AMOXICILLIN
     Dosage: TID (21 CAPSULES)
     Route: 065
     Dates: start: 20050107
  17. CLIMESSE [Suspect]
     Active Substance: ESTRADIOL VALERATE\NORETHINDRONE
     Dosage: UNK
     Route: 048
     Dates: start: 20081006
  18. CLIMESSE [Suspect]
     Active Substance: ESTRADIOL VALERATE\NORETHINDRONE
     Dosage: UNK
     Route: 048
     Dates: start: 20130509
  19. CLIMESSE [Suspect]
     Active Substance: ESTRADIOL VALERATE\NORETHINDRONE
     Dosage: UNK
     Route: 048
     Dates: start: 20120612
  20. CLIMESSE [Suspect]
     Active Substance: ESTRADIOL VALERATE\NORETHINDRONE
     Dosage: UNK
     Route: 048
     Dates: start: 20150401
  21. HYDROCORTISONE. [Suspect]
     Active Substance: HYDROCORTISONE
     Dosage: UNK
     Route: 065
     Dates: start: 20110107
  22. LATANOPROST. [Suspect]
     Active Substance: LATANOPROST
     Dosage: 01 DROP AT NIGHT IN BOTH EYES
     Route: 065
     Dates: start: 20060306, end: 20080108
  23. XALACOM [Suspect]
     Active Substance: LATANOPROST\TIMOLOL MALEATE
     Dosage: TO RIGHT EYE AT NIGHT (2.5 ML)
     Route: 065
     Dates: start: 20121112
  24. XALACOM [Suspect]
     Active Substance: LATANOPROST\TIMOLOL MALEATE
     Dosage: TO RIGHT EYE AT NIGHT (2.5 ML)
     Route: 065
     Dates: start: 20101224, end: 20141020
  25. XALACOM [Suspect]
     Active Substance: LATANOPROST\TIMOLOL MALEATE
     Dosage: TO RIGHT EYE AT NIGHT (2.5 ML)
     Route: 065
     Dates: start: 20120612
  26. CLIMESSE [Suspect]
     Active Substance: ESTRADIOL VALERATE\NORETHINDRONE
     Dosage: UNK, QD
     Route: 048
     Dates: start: 20020902
  27. LATANOPROST. [Suspect]
     Active Substance: LATANOPROST
     Dosage: 01 DROP AT NIGHT IN BOTH EYES
     Route: 065
     Dates: start: 20070220, end: 20080108
  28. XALACOM [Suspect]
     Active Substance: LATANOPROST\TIMOLOL MALEATE
     Dosage: TO RIGHT EYE AT NIGHT (2.5 ML)
     Route: 065
     Dates: start: 20110120
  29. XALACOM [Suspect]
     Active Substance: LATANOPROST\TIMOLOL MALEATE
     Dosage: TO RIGHT EYE AT NIGHT (2.5 ML)
     Route: 065
     Dates: start: 20150114
  30. XALACOM [Suspect]
     Active Substance: LATANOPROST\TIMOLOL MALEATE
     Dosage: TO RIGHT EYE AT NIGHT (2.5 ML)
     Route: 065
     Dates: start: 20151230
  31. XALACOM [Suspect]
     Active Substance: LATANOPROST\TIMOLOL MALEATE
     Dosage: TO RIGHT EYE AT NIGHT (2.5 ML)
     Route: 065
     Dates: start: 20140909
  32. XALACOM [Suspect]
     Active Substance: LATANOPROST\TIMOLOL MALEATE
     Dosage: TO RIGHT EYE AT NIGHT (2.5 ML)
     Route: 065
     Dates: start: 20140714
  33. CLIMESSE [Suspect]
     Active Substance: ESTRADIOL VALERATE\NORETHINDRONE
     Dosage: UNK
     Route: 048
     Dates: start: 20121210
  34. CLIMESSE [Suspect]
     Active Substance: ESTRADIOL VALERATE\NORETHINDRONE
     Dosage: UNK
     Route: 048
     Dates: start: 20100811
  35. HYDROCORTISONE. [Suspect]
     Active Substance: HYDROCORTISONE
     Indication: PRODUCT USED FOR UNKNOWN INDICATION
     Dosage: 15 G, TID
     Route: 065
     Dates: start: 20020514
  36. LATANOPROST. [Suspect]
     Active Substance: LATANOPROST
     Dosage: 01 DROP AT NIGHT IN BOTH EYES
     Route: 065
     Dates: start: 20070604, end: 20080108
  37. LATANOPROST. [Suspect]
     Active Substance: LATANOPROST
     Dosage: 01 DROP AT NIGHT IN BOTH EYES
     Route: 065
     Dates: start: 20060120, end: 20080108
  38. LATANOPROST. [Suspect]
     Active Substance: LATANOPROST
     Dosage: 01 DROP AT NIGHT IN BOTH EYES
     Route: 065
     Dates: start: 20050929, end: 20080108
  39. LATANOPROST. [Suspect]
     Active Substance: LATANOPROST
     Dosage: 01 DROP AT NIGHT IN BOTH EYES
     Route: 065
     Dates: start: 20060119, end: 20080108
  40. LATANOPROST. [Suspect]
     Active Substance: LATANOPROST
     Dosage: 01 DROP AT NIGHT IN BOTH EYES
     Route: 065
     Dates: start: 20070110, end: 20080108
  41. XALACOM [Suspect]
     Active Substance: LATANOPROST\TIMOLOL MALEATE
     Dosage: TO RIGHT EYE AT NIGHT (2.5 ML)
     Route: 065
     Dates: start: 20150501
  42. XALACOM [Suspect]
     Active Substance: LATANOPROST\TIMOLOL MALEATE
     Dosage: TO RIGHT EYE AT NIGHT (2.5 ML)
     Route: 065
     Dates: start: 20140617
  43. XALACOM [Suspect]
     Active Substance: LATANOPROST\TIMOLOL MALEATE
     Dosage: TO RIGHT EYE AT NIGHT (2.5 ML)
     Route: 065
     Dates: start: 20121015
  44. XALACOM [Suspect]
     Active Substance: LATANOPROST\TIMOLOL MALEATE
     Dosage: TO RIGHT EYE AT NIGHT (2.5 ML)
     Route: 065
     Dates: start: 20110321
  45. XALACOM [Suspect]
     Active Substance: LATANOPROST\TIMOLOL MALEATE
     Dosage: TO RIGHT EYE AT NIGHT (2.5 ML)
     Route: 065
     Dates: start: 20110616
  46. CLIMESSE [Suspect]
     Active Substance: ESTRADIOL VALERATE\NORETHINDRONE
     Dosage: UNK, QD
     Route: 048
     Dates: start: 20010829
  47. CLIMESSE [Suspect]
     Active Substance: ESTRADIOL VALERATE\NORETHINDRONE
     Dosage: UNK
     Route: 048
     Dates: start: 20080421
  48. CLIMESSE [Suspect]
     Active Substance: ESTRADIOL VALERATE\NORETHINDRONE
     Dosage: UNK
     Route: 048
     Dates: start: 20060620
  49. CLIMESSE [Suspect]
     Active Substance: ESTRADIOL VALERATE\NORETHINDRONE
     Dosage: UNK
     Route: 048
     Dates: start: 20090904
  50. CLIMESSE [Suspect]
     Active Substance: ESTRADIOL VALERATE\NORETHINDRONE
     Dosage: UNK
     Route: 048
     Dates: start: 20110119
  51. LATANOPROST. [Suspect]
     Active Substance: LATANOPROST
     Dosage: 01 DROP AT NIGHT IN BOTH EYES
     Route: 065
     Dates: start: 20070813, end: 20080108
  52. LATANOPROST. [Suspect]
     Active Substance: LATANOPROST
     Dosage: 01 DROP AT NIGHT IN BOTH EYES
     Route: 065
     Dates: start: 20050725, end: 20080108
  53. LATANOPROST. [Suspect]
     Active Substance: LATANOPROST
     Dosage: 01 DROP AT NIGHT IN BOTH EYES
     Route: 065
     Dates: start: 20060515, end: 20080108
  54. LATANOPROST. [Suspect]
     Active Substance: LATANOPROST
     Dosage: 01 DROP AT NIGHT IN BOTH EYES
     Route: 065
     Dates: start: 20080108, end: 20080108
  55. XALACOM [Suspect]
     Active Substance: LATANOPROST\TIMOLOL MALEATE
     Indication: PRODUCT USED FOR UNKNOWN INDICATION
     Dosage: TO RIGHT EYE AT NIGHT (2.5 ML)
     Route: 065
     Dates: start: 20050412, end: 20050607
  56. XALACOM [Suspect]
     Active Substance: LATANOPROST\TIMOLOL MALEATE
     Dosage: TO RIGHT EYE AT NIGHT (2.5 ML)
     Route: 065
     Dates: start: 20120131
  57. XALACOM [Suspect]
     Active Substance: LATANOPROST\TIMOLOL MALEATE
     Dosage: TO RIGHT EYE AT NIGHT (2.5 ML)
     Route: 065
     Dates: start: 20150305
  58. XALACOM [Suspect]
     Active Substance: LATANOPROST\TIMOLOL MALEATE
     Dosage: TO RIGHT EYE AT NIGHT (2.5 ML)
     Route: 065
     Dates: start: 20141020
  59. XALACOM [Suspect]
     Active Substance: LATANOPROST\TIMOLOL MALEATE
     Dosage: TO RIGHT EYE AT NIGHT (2.5 ML)
     Route: 065
     Dates: start: 20130206
  60. XALACOM [Suspect]
     Active Substance: LATANOPROST\TIMOLOL MALEATE
     Dosage: TO RIGHT EYE AT NIGHT (2.5 ML)
     Route: 065
     Dates: start: 20141111, end: 20151116
  61. XALACOM [Suspect]
     Active Substance: LATANOPROST\TIMOLOL MALEATE
     Dosage: TO RIGHT EYE AT NIGHT (2.5 ML)
     Route: 065
     Dates: start: 20110715
  62. CLIMESSE [Suspect]
     Active Substance: ESTRADIOL VALERATE\NORETHINDRONE
     Indication: HORMONE REPLACEMENT THERAPY
     Dosage: UNK UNK, QD
     Route: 048
     Dates: start: 20000921
  63. CLIMESSE [Suspect]
     Active Substance: ESTRADIOL VALERATE\NORETHINDRONE
     Dosage: UNK
     Route: 048
     Dates: start: 20140826
  64. CLIMESSE [Suspect]
     Active Substance: ESTRADIOL VALERATE\NORETHINDRONE
     Dosage: UNK
     Route: 048
     Dates: start: 20140325
  65. CLIMESSE [Suspect]
     Active Substance: ESTRADIOL VALERATE\NORETHINDRONE
     Dosage: UNK
     Route: 048
     Dates: start: 20061128
  66. CLIMESSE [Suspect]
     Active Substance: ESTRADIOL VALERATE\NORETHINDRONE
     Dosage: UNK
     Route: 048
     Dates: start: 20071018
  67. LATANOPROST. [Suspect]
     Active Substance: LATANOPROST
     Dosage: 01 DROP AT NIGHT IN BOTH EYES
     Route: 065
     Dates: start: 20070418, end: 20080108
  68. LATANOPROST. [Suspect]
     Active Substance: LATANOPROST
     Dosage: 01 DROP AT NIGHT IN BOTH EYES
     Route: 065
     Dates: start: 20071122, end: 20080108
  69. TRAVATAN [Suspect]
     Active Substance: TRAVOPROST
     Indication: PRODUCT USED FOR UNKNOWN INDICATION
     Dosage: 1 DF, QHS, AT NIGHT IN BOTH EYES
     Route: 047
     Dates: start: 20100802, end: 20101119
  70. XALACOM [Suspect]
     Active Substance: LATANOPROST\TIMOLOL MALEATE
     Dosage: TO RIGHT EYE AT NIGHT (2.5 ML)
     Route: 065
     Dates: start: 20120327
  71. XALACOM [Suspect]
     Active Substance: LATANOPROST\TIMOLOL MALEATE
     Dosage: TO RIGHT EYE AT NIGHT (2.5 ML)
     Route: 065
     Dates: start: 20151116
  72. XALACOM [Suspect]
     Active Substance: LATANOPROST\TIMOLOL MALEATE
     Dosage: TO RIGHT EYE AT NIGHT (2.5 ML)
     Route: 065
     Dates: start: 20050607
  73. XALACOM [Suspect]
     Active Substance: LATANOPROST\TIMOLOL MALEATE
     Dosage: TO RIGHT EYE AT NIGHT (2.5 ML)
     Route: 065
     Dates: start: 20140425
  74. XALACOM [Suspect]
     Active Substance: LATANOPROST\TIMOLOL MALEATE
     Dosage: TO RIGHT EYE AT NIGHT (2.5 ML)
     Route: 065
     Dates: start: 20151230
  75. XALACOM [Suspect]
     Active Substance: LATANOPROST\TIMOLOL MALEATE
     Dosage: TO RIGHT EYE AT NIGHT (2.5 ML)
     Route: 065
     Dates: start: 20141111
  76. XALACOM [Suspect]
     Active Substance: LATANOPROST\TIMOLOL MALEATE
     Dosage: TO RIGHT EYE AT NIGHT (2.5 ML)
     Route: 065
     Dates: start: 20120525
  77. XALACOM [Suspect]
     Active Substance: LATANOPROST\TIMOLOL MALEATE
     Dosage: TO RIGHT EYE AT NIGHT (2.5 ML)
     Route: 065
     Dates: start: 20150917
  78. XALACOM [Suspect]
     Active Substance: LATANOPROST\TIMOLOL MALEATE
     Dosage: TO RIGHT EYE AT NIGHT (2.5 ML)
     Route: 065
     Dates: start: 20140812
  79. AMOXYCILLIN                        /00249601/ [Concomitant]
     Active Substance: AMOXICILLIN
     Indication: PRODUCT USED FOR UNKNOWN INDICATION
     Dosage: TID (15 CAPSULES)
     Route: 065
     Dates: start: 19900305
  80. KLIOFEM [Suspect]
     Active Substance: ESTRADIOL\NORETHINDRONE ACETATE
     Indication: PRODUCT USED FOR UNKNOWN INDICATION
     Dosage: UNK, QD
     Route: 065
     Dates: start: 20010207
  81. CLIMESSE [Suspect]
     Active Substance: ESTRADIOL VALERATE\NORETHINDRONE
     Dosage: UNK
     Route: 048
     Dates: start: 20110707
  82. CLIMESSE [Suspect]
     Active Substance: ESTRADIOL VALERATE\NORETHINDRONE
     Dosage: UNK
     Route: 048
     Dates: start: 20060105
  83. CLIMESSE [Suspect]
     Active Substance: ESTRADIOL VALERATE\NORETHINDRONE
     Dosage: UNK
     Route: 048
     Dates: start: 20040210
  84. CLIMESSE [Suspect]
     Active Substance: ESTRADIOL VALERATE\NORETHINDRONE
     Dosage: UNK
     Route: 048
     Dates: start: 20030210
  85. CLIMESSE [Suspect]
     Active Substance: ESTRADIOL VALERATE\NORETHINDRONE
     Dosage: UNK
     Route: 048
     Dates: start: 20100218
  86. LATANOPROST. [Suspect]
     Active Substance: LATANOPROST
     Dosage: 01 DROP AT NIGHT IN BOTH EYES
     Route: 065
     Dates: start: 20051206, end: 20080108
  87. XALACOM [Suspect]
     Active Substance: LATANOPROST\TIMOLOL MALEATE
     Dosage: TO RIGHT EYE AT NIGHT (2.5 ML)
     Route: 065
     Dates: start: 20150714
  88. XALACOM [Suspect]
     Active Substance: LATANOPROST\TIMOLOL MALEATE
     Dosage: TO RIGHT EYE AT NIGHT (2.5 ML)
     Route: 065
     Dates: start: 20151006
  89. XALACOM [Suspect]
     Active Substance: LATANOPROST\TIMOLOL MALEATE
     Dosage: TO RIGHT EYE AT NIGHT (2.5 ML)
     Route: 065
     Dates: start: 20150305
  90. XALACOM [Suspect]
     Active Substance: LATANOPROST\TIMOLOL MALEATE
     Dosage: TO RIGHT EYE AT NIGHT (2.5 ML)
     Route: 065
     Dates: start: 20120224
  91. XALACOM [Suspect]
     Active Substance: LATANOPROST\TIMOLOL MALEATE
     Dosage: TO RIGHT EYE AT NIGHT (2.5 ML)
     Route: 065
     Dates: start: 20150114
  92. CLIMESSE [Suspect]
     Active Substance: ESTRADIOL VALERATE\NORETHINDRONE
     Dosage: UNK
     Route: 048
     Dates: start: 20090330
  93. CLIMESSE [Suspect]
     Active Substance: ESTRADIOL VALERATE\NORETHINDRONE
     Dosage: UNK
     Route: 048
     Dates: start: 20050107
  94. CLIMESSE [Suspect]
     Active Substance: ESTRADIOL VALERATE\NORETHINDRONE
     Dosage: UNK
     Route: 048
     Dates: start: 20140210
  95. CLIMESSE [Suspect]
     Active Substance: ESTRADIOL VALERATE\NORETHINDRONE
     Dosage: UNK UNK, QD
     Route: 048
     Dates: start: 20010319
  96. CLIMESSE [Suspect]
     Active Substance: ESTRADIOL VALERATE\NORETHINDRONE
     Dosage: UNK
     Route: 048
     Dates: start: 20120105
  97. CLIMESSE [Suspect]
     Active Substance: ESTRADIOL VALERATE\NORETHINDRONE
     Dosage: UNK
     Route: 048
     Dates: start: 20070509
  98. INFLUENZA VIRUS [Suspect]
     Active Substance: INFLUENZA VIRUS VACCINE
     Indication: IMMUNISATION
     Dosage: 0.5 ML, SINGLE
     Route: 065
     Dates: start: 20131028, end: 20131028
  99. LATANOPROST. [Suspect]
     Active Substance: LATANOPROST
     Dosage: 01 DROP AT NIGHT IN BOTH EYES
     Route: 065
     Dates: start: 20061103, end: 20080108
  100. LATANOPROST. [Suspect]
     Active Substance: LATANOPROST
     Dosage: 01 DROP AT NIGHT IN BOTH EYES
     Route: 065
     Dates: start: 20050623, end: 20080108
  101. XALACOM [Suspect]
     Active Substance: LATANOPROST\TIMOLOL MALEATE
     Dosage: TO RIGHT EYE AT NIGHT (2.5 ML)
     Route: 065
     Dates: start: 20150331
  102. XALACOM [Suspect]
     Active Substance: LATANOPROST\TIMOLOL MALEATE
     Dosage: TO RIGHT EYE AT NIGHT (2.5 ML)
     Route: 065
     Dates: start: 20150603
  103. XALACOM [Suspect]
     Active Substance: LATANOPROST\TIMOLOL MALEATE
     Dosage: TO RIGHT EYE AT NIGHT (2.5 ML)
     Route: 065
     Dates: start: 20141230
  104. XALACOM [Suspect]
     Active Substance: LATANOPROST\TIMOLOL MALEATE
     Dosage: TO RIGHT EYE AT NIGHT (2.5 ML)
     Route: 065
     Dates: start: 20120716
  105. XALACOM [Suspect]
     Active Substance: LATANOPROST\TIMOLOL MALEATE
     Dosage: TO RIGHT EYE AT NIGHT (2.5 ML)
     Route: 065
     Dates: start: 20120917
  106. XALACOM [Suspect]
     Active Substance: LATANOPROST\TIMOLOL MALEATE
     Dosage: TO RIGHT EYE AT NIGHT (2.5 ML)
     Route: 065
     Dates: start: 20120103
  107. XALACOM [Suspect]
     Active Substance: LATANOPROST\TIMOLOL MALEATE
     Dosage: TO RIGHT EYE AT NIGHT (2.5 ML)
     Route: 065
     Dates: start: 20130111

REACTIONS (7)
  - Facial paralysis [Recovered/Resolved]
  - Haemorrhoids [Not Recovered/Not Resolved]
  - Multiple sclerosis [Not Recovered/Not Resolved]
  - Finger deformity [Unknown]
  - Normal tension glaucoma [Not Recovered/Not Resolved]
  - Glaucoma [Not Recovered/Not Resolved]
  - Seborrhoeic keratosis [Not Recovered/Not Resolved]

NARRATIVE: CASE EVENT DATE: 20021101
